FAERS Safety Report 12545091 (Version 6)
Quarter: 2016Q4

REPORT INFORMATION
  Report Type: Report from Study
  Country: US (occurrence: US)
  Receive Date: 20160711
  Receipt Date: 20161108
  Transmission Date: 20170207
  Serious: Yes (Hospitalization, Other)
  Sender: FDA-Public Use
  Company Number: US-JNJFOC-20160704681

PATIENT
  Age: 74 Year
  Sex: Female

DRUGS (2)
  1. IMBRUVICA [Suspect]
     Active Substance: IBRUTINIB
     Indication: CHRONIC LYMPHOCYTIC LEUKAEMIA
     Route: 048
     Dates: start: 20140604
  2. IMBRUVICA [Suspect]
     Active Substance: IBRUTINIB
     Indication: CHRONIC LYMPHOCYTIC LEUKAEMIA
     Route: 048
     Dates: start: 20160606

REACTIONS (13)
  - Cardiac failure [Not Recovered/Not Resolved]
  - Diverticular perforation [Unknown]
  - Expired product administered [Unknown]
  - Incorrect dose administered [Recovered/Resolved]
  - Skin disorder [Unknown]
  - Off label use [Recovered/Resolved]
  - Alopecia [Not Recovered/Not Resolved]
  - Fluid retention [Unknown]
  - Atrial fibrillation [Unknown]
  - Endotracheal intubation complication [Unknown]
  - Diverticulitis [Recovered/Resolved with Sequelae]
  - Abscess intestinal [Recovered/Resolved with Sequelae]
  - Post procedural cellulitis [Recovered/Resolved]

NARRATIVE: CASE EVENT DATE: 20140606
